FAERS Safety Report 24877856 (Version 1)
Quarter: 2025Q1

REPORT INFORMATION
  Report Type: Spontaneous
  Country: US (occurrence: None)
  Receive Date: 20250122
  Receipt Date: 20250122
  Transmission Date: 20250408
  Serious: No
  Sender: FDA-CTU
  Company Number: None

PATIENT
  Age: 65 Year
  Sex: Male

DRUGS (1)
  1. LENALIDOMIDE [Suspect]
     Active Substance: LENALIDOMIDE
     Indication: Follicular lymphoma stage III
     Dosage: FREQUENCY : DAILY;?
     Route: 048
     Dates: start: 20231002

REACTIONS (5)
  - Decreased appetite [None]
  - Dehydration [None]
  - Dizziness [None]
  - Asthenia [None]
  - Therapy interrupted [None]

NARRATIVE: CASE EVENT DATE: 20241204
